FAERS Safety Report 9511817 (Version 1)
Quarter: 2013Q1

REPORT INFORMATION
  Report Type: Spontaneous
  Country: US (occurrence: None)
  Receive Date: 20130305
  Receipt Date: 20130305
  Transmission Date: 20140127
  Serious: Yes (Other)
  Sender: FDA-Public Use
  Company Number: 163-21880-12111877

PATIENT
  Age: 79 Year
  Sex: Female

DRUGS (7)
  1. REVLIMID (LENALIDOMIDE) (CAPSULES) [Suspect]
     Indication: PLASMA CELL MYELOMA
     Dosage: 10 MG, 21 IN 21 D, PO
     Route: 048
     Dates: start: 20120912
  2. ACYCLOVIR (ACICLOVIR) (CAPSULES) [Concomitant]
  3. LASIX (FUROSEMIDE) (TABLETS) [Concomitant]
  4. LEVOTHROXINE SODIUM (LEVOTHYROXINE SODIUM) (UNKNOWN) [Concomitant]
  5. MAGNESIUM OXIDE (MAGNESIUM OXIDE) (TABLETS) [Concomitant]
  6. TRAZODONE HCL (TRAZODONE HYDROCHLORIDE) (UNKNOWN) [Concomitant]
  7. VELCADE [Concomitant]

REACTIONS (4)
  - Neck pain [None]
  - Decreased appetite [None]
  - Constipation [None]
  - Diarrhoea [None]
